FAERS Safety Report 17526221 (Version 1)
Quarter: 2020Q1

REPORT INFORMATION
  Report Type: Spontaneous
  Country: HR (occurrence: HR)
  Receive Date: 20200311
  Receipt Date: 20200311
  Transmission Date: 20200409
  Serious: Yes (Other)
  Sender: FDA-Public Use
  Company Number: HR-ALLERGAN-2011043US

PATIENT
  Sex: Male

DRUGS (4)
  1. PROMAZIN [Suspect]
     Active Substance: PROMAZINE
     Indication: PRODUCT USED FOR UNKNOWN INDICATION
     Route: 048
     Dates: start: 20190827, end: 20190827
  2. OLANZAPIN [Suspect]
     Active Substance: OLANZAPINE
     Indication: PRODUCT USED FOR UNKNOWN INDICATION
     Route: 048
     Dates: start: 20190827, end: 20190827
  3. ESCITALOPRAM OXALATE - BP [Suspect]
     Active Substance: ESCITALOPRAM OXALATE
     Indication: PRODUCT USED FOR UNKNOWN INDICATION
     Dosage: OVERDOSE: 100MG
     Route: 048
     Dates: start: 20190827, end: 20190827
  4. CANNABIS [Suspect]
     Active Substance: CANNABIS SATIVA SUBSP. INDICA TOP
     Indication: PRODUCT USED FOR UNKNOWN INDICATION
     Route: 055
     Dates: start: 20190827, end: 20190827

REACTIONS (3)
  - Intentional overdose [Unknown]
  - Suicide attempt [Unknown]
  - Agitation [Unknown]

NARRATIVE: CASE EVENT DATE: 20190827
